FAERS Safety Report 12075949 (Version 3)
Quarter: 2016Q2

REPORT INFORMATION
  Report Type: Spontaneous
  Country: IT (occurrence: IT)
  Receive Date: 20160214
  Receipt Date: 20160415
  Transmission Date: 20160815
  Serious: Yes (Hospitalization)
  Sender: FDA-Public Use
  Company Number: IT-009507513-1602ITA006067

PATIENT
  Age: 57 Year
  Sex: Female

DRUGS (2)
  1. VASEXTEN (BARNIDIPINE HYDROCHLORIDE) [Concomitant]
     Active Substance: BARNIDIPINE
  2. GOLTOR 10 MG / 10 MG COMPRESSE [Suspect]
     Active Substance: EZETIMIBE\SIMVASTATIN
     Indication: HYPERCHOLESTEROLAEMIA
     Dosage: 1 DF, QD
     Route: 048
     Dates: start: 20150701, end: 20151231

REACTIONS (1)
  - Dermatomyositis [Not Recovered/Not Resolved]

NARRATIVE: CASE EVENT DATE: 20150731
